FAERS Safety Report 15467054 (Version 1)
Quarter: 2018Q4

REPORT INFORMATION
  Report Type: Spontaneous
  Country: US (occurrence: US)
  Receive Date: 20181005
  Receipt Date: 20181005
  Transmission Date: 20190204
  Serious: No
  Sender: FDA-Public Use
  Company Number: US-HIKMA PHARMACEUTICALS USA INC.-US-H14001-17-04119

PATIENT
  Sex: Male
  Weight: 99.88 kg

DRUGS (1)
  1. DEXAMETHASONE SODIUM PHOSPHATE. [Suspect]
     Active Substance: DEXAMETHASONE SODIUM PHOSPHATE
     Indication: PAIN
     Route: 065
     Dates: start: 20170915, end: 20170915

REACTIONS (2)
  - Pain [Unknown]
  - Respiratory tract congestion [Unknown]
